FAERS Safety Report 16450037 (Version 1)
Quarter: 2019Q2

REPORT INFORMATION
  Report Type: Spontaneous
  Country: IT (occurrence: IT)
  Receive Date: 20190619
  Receipt Date: 20190619
  Transmission Date: 20190711
  Serious: Yes (Other)
  Sender: FDA-Public Use
  Company Number: IT-SA-2019SA164095

PATIENT
  Age: 48 Year
  Sex: Female

DRUGS (3)
  1. THIOCOLCHICOSIDE [Suspect]
     Active Substance: THIOCOLCHICOSIDE
     Indication: MESOTHERAPY
     Dosage: 1 DF, TOTAL
     Route: 023
     Dates: start: 20190601, end: 20190601
  2. TRIAMCINOLONE ACETONIDE. [Suspect]
     Active Substance: TRIAMCINOLONE ACETONIDE
     Indication: MESOTHERAPY
     Dosage: 40 MG, TOTAL
     Route: 023
     Dates: start: 20190601, end: 20190601
  3. NAROPINA [Suspect]
     Active Substance: ROPIVACAINE HYDROCHLORIDE
     Indication: MESOTHERAPY
     Dosage: 6 ML, TOTAL
     Route: 023
     Dates: start: 20190601, end: 20190601

REACTIONS (3)
  - Pain [Not Recovered/Not Resolved]
  - Pruritus [Not Recovered/Not Resolved]
  - Angioedema [Not Recovered/Not Resolved]

NARRATIVE: CASE EVENT DATE: 20190601
